FAERS Safety Report 7246983-6 (Version None)
Quarter: 2011Q1

REPORT INFORMATION
  Report Type: 
  Country: None (occurrence: None)
  Receive Date: 20110127
  Receipt Date: 20110119
  Transmission Date: 20110831
  Serious: Yes (Death)
  Sender: FDA-Public Use
  Company Number: US-NOVOPROD-321958

PATIENT

DRUGS (2)
  1. NOVOSEVEN RT [Suspect]
     Indication: HAEMORRHAGE
     Dosage: UNKNOWN
  2. NOVOSEVEN RT [Suspect]
     Indication: ACQUIRED HAEMOPHILIA

REACTIONS (1)
  - DRUG INEFFECTIVE [None]
